FAERS Safety Report 23368115 (Version 2)
Quarter: 2024Q1

REPORT INFORMATION
  Report Type: Spontaneous
  Country: DK (occurrence: DK)
  Receive Date: 20240105
  Receipt Date: 20240212
  Transmission Date: 20240410
  Serious: Yes (Other)
  Sender: FDA-Public Use
  Company Number: DK-SANDOZ-SDZ2023DK075088

PATIENT
  Sex: Male

DRUGS (1)
  1. METHOTREXATE (METHOTREXATE SODIUM) [Suspect]
     Active Substance: METHOTREXATE SODIUM
     Indication: Rheumatoid arthritis
     Dosage: 2.5 MG,X 10 ONCE A WEEK
     Route: 065

REACTIONS (4)
  - Foreign body in throat [Unknown]
  - Product packaging issue [Unknown]
  - Product use complaint [Unknown]
  - Product size issue [Unknown]
